FAERS Safety Report 13422840 (Version 1)
Quarter: 2017Q2

REPORT INFORMATION
  Report Type: Spontaneous
  Country: US (occurrence: US)
  Receive Date: 20170409
  Receipt Date: 20170409
  Transmission Date: 20170830
  Serious: Yes (Life-Threatening, Disabling)
  Sender: FDA-Public Use
  Company Number: None

PATIENT
  Age: 71 Year
  Sex: Female
  Weight: 81.65 kg

DRUGS (14)
  1. ETOMIDATE. [Suspect]
     Active Substance: ETOMIDATE
     Indication: JOINT DISLOCATION
     Dates: start: 20170210, end: 20170210
  2. LOW DOSE ASPRIN [Concomitant]
     Active Substance: ASPIRIN
  3. MECLIZINE [Concomitant]
     Active Substance: MECLIZINE HYDROCHLORIDE
  4. VITIMIN C W/D [Concomitant]
  5. IBURPROFEN [Concomitant]
  6. FLUOXETINE [Concomitant]
     Active Substance: FLUOXETINE HYDROCHLORIDE
  7. OMEPRAZOLE. [Concomitant]
     Active Substance: OMEPRAZOLE
  8. VITIMIM D [Concomitant]
  9. GABAPENTA [Concomitant]
  10. LOSARTAN. [Concomitant]
     Active Substance: LOSARTAN
  11. ATORVASTATIN [Concomitant]
     Active Substance: ATORVASTATIN
  12. SPRIVIVA [Concomitant]
  13. CARVEDILOL. [Concomitant]
     Active Substance: CARVEDILOL
  14. PRO AIR HFR [Concomitant]

REACTIONS (1)
  - Cardio-respiratory arrest [None]

NARRATIVE: CASE EVENT DATE: 20170210
